FAERS Safety Report 8318934-4 (Version None)
Quarter: 2012Q2

REPORT INFORMATION
  Report Type: 
  Country: None (occurrence: None)
  Receive Date: 20120427
  Receipt Date: 20120419
  Transmission Date: 20120825
  Serious: Yes (Life-Threatening, Hospitalization)
  Sender: FDA-Public Use
  Company Number: CA-JNJFOC-20120408458

PATIENT
  Sex: Male
  Weight: 90 kg

DRUGS (3)
  1. REMICADE [Suspect]
     Indication: ANKYLOSING SPONDYLITIS
     Dosage: 2 INFUSION WAS GIVEN ON ^WEEK 2^
     Route: 042
     Dates: start: 20120404, end: 20120419
  2. REMICADE [Suspect]
     Indication: RHEUMATOID ARTHRITIS
     Dosage: 2 INFUSION WAS GIVEN ON ^WEEK 2^
     Route: 042
     Dates: start: 20120404, end: 20120419
  3. PREDNISONE TAB [Concomitant]
     Route: 065

REACTIONS (8)
  - PRURITUS [None]
  - DYSPNOEA [None]
  - TACHYCARDIA [None]
  - FLUSHING [None]
  - DYSPHAGIA [None]
  - INFUSION RELATED REACTION [None]
  - VOMITING [None]
  - SPEECH DISORDER [None]
